FAERS Safety Report 19834655 (Version 1)
Quarter: 2021Q3

REPORT INFORMATION
  Report Type: Other
  Country: US (occurrence: US)
  Receive Date: 20210915
  Receipt Date: 20210915
  Transmission Date: 20211014
  Serious: Yes (Other)
  Sender: FDA-Public Use
  Company Number: US-LEADIANT BIOSCIENCES INC-2020STPI000356

PATIENT
  Age: 50 Year
  Sex: Male

DRUGS (11)
  1. LEVETIRACETAM. [Concomitant]
     Active Substance: LEVETIRACETAM
  2. PROCHLORPERAZINE. [Concomitant]
     Active Substance: PROCHLORPERAZINE
  3. VIMPAT [Concomitant]
     Active Substance: LACOSAMIDE
  4. GABAPENTIN. [Concomitant]
     Active Substance: GABAPENTIN
  5. BACLOFEN. [Concomitant]
     Active Substance: BACLOFEN
  6. SANCUSO [Concomitant]
     Active Substance: GRANISETRON
  7. MATULANE [Suspect]
     Active Substance: PROCARBAZINE HYDROCHLORIDE
     Indication: OLIGODENDROGLIOMA
     Dosage: 100 MILLIGRAM, QD DAYS 8?21 EVERY 42 DAYS
     Route: 048
     Dates: start: 202004, end: 20200801
  8. ONDANSETRON [Concomitant]
     Active Substance: ONDANSETRON
  9. GLEOSTINE [Concomitant]
     Active Substance: LOMUSTINE
  10. TAMSULOSIN [Concomitant]
     Active Substance: TAMSULOSIN
  11. OMEPRAZOLE. [Concomitant]
     Active Substance: OMEPRAZOLE

REACTIONS (2)
  - Dyspnoea [Recovered/Resolved]
  - Urticaria [Recovered/Resolved]

NARRATIVE: CASE EVENT DATE: 20200801
